FAERS Safety Report 6448041-7 (Version None)
Quarter: 2009Q4

REPORT INFORMATION
  Report Type: 
  Country: None (occurrence: None)
  Receive Date: 20091120
  Receipt Date: 20091112
  Transmission Date: 20100525
  Serious: Yes (Other)
  Sender: FDA-Public Use
  Company Number: US-ROCHE-668984

PATIENT
  Sex: Female
  Weight: 98.9 kg

DRUGS (1)
  1. CAPECITABINE [Suspect]
     Indication: BREAST CANCER
     Dosage: DOSAGE REGIMEN: 2 TABS IN AM AND 1 TAB PM
     Route: 048
     Dates: start: 20090811

REACTIONS (3)
  - ABASIA [None]
  - FATIGUE [None]
  - PAIN IN JAW [None]
